FAERS Safety Report 20852696 (Version 1)
Quarter: 2022Q2

REPORT INFORMATION
  Report Type: Spontaneous
  Country: US (occurrence: US)
  Receive Date: 20220520
  Receipt Date: 20220520
  Transmission Date: 20220721
  Serious: No
  Sender: FDA-Public Use
  Company Number: US-BAXTER-2022BAX010360

PATIENT
  Sex: Male

DRUGS (2)
  1. DEXTROSE\DOBUTAMINE HYDROCHLORIDE [Suspect]
     Active Substance: DEXTROSE\DOBUTAMINE HYDROCHLORIDE
     Dosage: UNK
     Route: 065
     Dates: start: 20220427
  2. DEXTROSE\DOBUTAMINE HYDROCHLORIDE [Suspect]
     Active Substance: DEXTROSE\DOBUTAMINE HYDROCHLORIDE
     Indication: Cardiac failure
     Route: 065

REACTIONS (4)
  - Cardiac disorder [Recovered/Resolved]
  - Incorrect dose administered [Unknown]
  - Product label confusion [Unknown]
  - Product dispensing error [Unknown]
